FAERS Safety Report 14664606 (Version 11)
Quarter: 2022Q1

REPORT INFORMATION
  Report Type: Report from Study
  Country: CO (occurrence: CO)
  Receive Date: 20180321
  Receipt Date: 20220209
  Transmission Date: 20220423
  Serious: Yes (Hospitalization)
  Sender: FDA-Public Use
  Company Number: PHHY2018CO014013

PATIENT
  Age: 12 Year
  Sex: Male
  Weight: 21 kg

DRUGS (12)
  1. ILARIS [Suspect]
     Active Substance: CANAKINUMAB
     Indication: Still^s disease
     Dosage: 150 MG, QMO
     Route: 058
     Dates: start: 20171129
  2. ILARIS [Suspect]
     Active Substance: CANAKINUMAB
     Dosage: 100 MG, QMO
     Route: 058
     Dates: start: 2017, end: 201811
  3. ILARIS [Suspect]
     Active Substance: CANAKINUMAB
     Dosage: 150 MG, QMO
     Route: 058
     Dates: start: 201811, end: 20181226
  4. ILARIS [Suspect]
     Active Substance: CANAKINUMAB
     Dosage: 150 MG, QMO
     Route: 058
  5. ILARIS [Suspect]
     Active Substance: CANAKINUMAB
     Dosage: 150 MG, QMO
     Route: 058
     Dates: start: 20190924, end: 202003
  6. ILARIS [Suspect]
     Active Substance: CANAKINUMAB
     Dosage: 150 MG, QMO
     Route: 058
  7. ILARIS [Suspect]
     Active Substance: CANAKINUMAB
     Dosage: 80 MG, QMO
     Route: 058
     Dates: start: 20190924
  8. PREDNISOLONE [Concomitant]
     Active Substance: PREDNISOLONE
     Indication: Product used for unknown indication
     Dosage: UNK
     Route: 065
  9. FOLIC ACID [Concomitant]
     Active Substance: FOLIC ACID
     Indication: Product used for unknown indication
     Dosage: UNK
     Route: 065
  10. METHOTREXATE [Concomitant]
     Active Substance: METHOTREXATE
     Indication: Product used for unknown indication
     Dosage: UNK
     Route: 065
  11. FERROUS SULFATE [Concomitant]
     Active Substance: FERROUS SULFATE
     Indication: Product used for unknown indication
     Dosage: UNK
     Route: 065
  12. OMEPRAZOLE [Concomitant]
     Active Substance: OMEPRAZOLE
     Indication: Product used for unknown indication
     Dosage: UNK
     Route: 065

REACTIONS (27)
  - Gait inability [Not Recovered/Not Resolved]
  - Illness [Unknown]
  - Pyrexia [Unknown]
  - Arthritis [Not Recovered/Not Resolved]
  - Viral infection [Unknown]
  - Hypersensitivity [Unknown]
  - Malaise [Unknown]
  - Mobility decreased [Not Recovered/Not Resolved]
  - Dyspnoea [Recovering/Resolving]
  - Chest pain [Recovering/Resolving]
  - Condition aggravated [Not Recovered/Not Resolved]
  - Immune system disorder [Not Recovered/Not Resolved]
  - Platelet count decreased [Not Recovered/Not Resolved]
  - Peripheral swelling [Unknown]
  - Gait disturbance [Not Recovered/Not Resolved]
  - Pain [Unknown]
  - Pain in extremity [Not Recovered/Not Resolved]
  - Dehydration [Unknown]
  - Bone pain [Unknown]
  - Trismus [Unknown]
  - Teething [Unknown]
  - Bone disorder [Unknown]
  - Musculoskeletal stiffness [Unknown]
  - Crying [Unknown]
  - Screaming [Unknown]
  - Product dose omission issue [Unknown]
  - Off label use [Unknown]

NARRATIVE: CASE EVENT DATE: 20190201
